FAERS Safety Report 6055199-0 (Version None)
Quarter: 2009Q1

REPORT INFORMATION
  Report Type: 
  Country: None (occurrence: None)
  Receive Date: 20090128
  Receipt Date: 20090115
  Transmission Date: 20090719
  Serious: Yes (Hospitalization, Other)
  Sender: FDA-Public Use
  Company Number: US-ELI_LILLY_AND_COMPANY-US200901003854

PATIENT
  Age: 70 Year
  Sex: Female

DRUGS (2)
  1. CYMBALTA [Suspect]
     Dates: end: 20081201
  2. CORTICOSTEROIDS [Concomitant]

REACTIONS (3)
  - HAEMORRHAGE [None]
  - PITUITARY TUMOUR [None]
  - PITUITARY-DEPENDENT CUSHING'S SYNDROME [None]
